FAERS Safety Report 8709346 (Version 3)
Quarter: 2012Q4

REPORT INFORMATION
  Report Type: 
  Country: US (occurrence: US)
  Receive Date: 20120806
  Receipt Date: 20121114
  Transmission Date: 20130627
  Serious: Yes (Other)
  Sender: FDA-Public Use
  Company Number: US-ROCHE-1064988

PATIENT
  Age: 13 Year
  Sex: Female
  Weight: 68.1 kg

DRUGS (12)
  1. ACCUTANE [Suspect]
     Indication: ACNE
     Route: 048
     Dates: start: 20000531
  2. ACCUTANE [Suspect]
     Route: 065
     Dates: start: 200004
  3. ACCUTANE [Suspect]
     Route: 048
     Dates: start: 20001009
  4. ACCUTANE [Suspect]
     Route: 048
     Dates: start: 20001030, end: 20001211
  5. ACCUTANE [Suspect]
     Route: 048
     Dates: start: 20010109
  6. ACCUTANE [Suspect]
     Route: 048
     Dates: start: 20020121
  7. ACCUTANE [Suspect]
     Dosage: 40 mg daily alternating with 40 mg twice daily
     Route: 048
     Dates: start: 20020506
  8. ACCUTANE [Suspect]
     Route: 048
     Dates: start: 20030124
  9. ACCUTANE [Suspect]
     Route: 048
     Dates: start: 20030425
  10. ACCUTANE [Suspect]
     Route: 048
     Dates: start: 20031126
  11. ACCUTANE [Suspect]
     Route: 048
     Dates: start: 20031218
  12. ACCUTANE [Suspect]
     Dosage: 40 mg daily alternating with 40 mg twice daily
     Route: 048
     Dates: start: 20040325

REACTIONS (10)
  - Colitis ulcerative [Unknown]
  - Inflammatory bowel disease [Unknown]
  - Proctitis [Unknown]
  - Emotional distress [Unknown]
  - Chapped lips [Unknown]
  - Cheilitis [Unknown]
  - Vision blurred [Unknown]
  - Dry skin [Unknown]
  - Epistaxis [Unknown]
  - Headache [Recovered/Resolved]
